FAERS Safety Report 7994189-5 (Version None)
Quarter: 2011Q4

REPORT INFORMATION
  Report Type: 
  Country: None (occurrence: None)
  Receive Date: 20111220
  Receipt Date: 20111209
  Transmission Date: 20120403
  Serious: Yes (Death)
  Sender: FDA-Public Use
  Company Number: JP-BRISTOL-MYERS SQUIBB COMPANY-16301210

PATIENT
  Age: 50 Year
  Sex: Female

DRUGS (1)
  1. ABILIFY [Suspect]
     Indication: PARANOID PERSONALITY DISORDER
     Route: 048

REACTIONS (1)
  - MYOCARDIAL INFARCTION [None]
